FAERS Safety Report 6048953-2 (Version None)
Quarter: 2009Q1

REPORT INFORMATION
  Report Type: 
  Country: None (occurrence: None)
  Receive Date: 20090123
  Receipt Date: 20090113
  Transmission Date: 20090719
  Serious: Yes (Hospitalization, Other)
  Sender: FDA-Public Use
  Company Number: US-ELI_LILLY_AND_COMPANY-US200812002363

PATIENT

DRUGS (27)
  1. BYETTA [Suspect]
     Dosage: 5 UG, UNKNOWN
     Route: 065
     Dates: start: 20050805, end: 20061101
  2. PROMETHAZINE [Concomitant]
     Dosage: UNK, UNKNOWN
  3. RANITIDINE [Concomitant]
     Dosage: UNK, UNKNOWN
  4. AMIODARONE HCL [Concomitant]
     Dosage: 200 MG, UNKNOWN
  5. BISACODYL [Concomitant]
     Dosage: UNK, UNKNOWN
  6. HYDROCODONE BITARTRATE AND ACETAMINOPHEN [Concomitant]
     Dosage: UNK, UNKNOWN
  7. WARFARIN [Concomitant]
     Dosage: 1 MG, UNKNOWN
  8. WARFARIN [Concomitant]
     Dosage: 5 MG, UNKNOWN
  9. LEVAQUIN [Concomitant]
     Dosage: UNK, UNKNOWN
  10. CATAPRES-TTS-1 [Concomitant]
     Dosage: UNK, UNKNOWN
  11. LANOXIN [Concomitant]
     Dosage: UNK, UNKNOWN
  12. AVANDIA [Concomitant]
     Dosage: UNK, UNKNOWN
  13. COREG [Concomitant]
     Dosage: 12.5 MG, UNKNOWN
  14. SIMVASTATIN [Concomitant]
     Dosage: UNK, UNKNOWN
  15. CYTUSS HC [Concomitant]
     Dosage: UNK, UNKNOWN
  16. LOTREL [Concomitant]
     Dosage: UNK, UNKNOWN
  17. AMARYL [Concomitant]
     Dosage: 4 MG, UNKNOWN
  18. NIASPAN [Concomitant]
     Dosage: UNK, UNKNOWN
  19. CIPROFLOXACIN [Concomitant]
     Dosage: UNK, UNKNOWN
  20. OXYCODONE AND ACETAMINOPHEN [Concomitant]
     Dosage: UNK, UNKNOWN
  21. POTASSIUM CHLORIDE [Concomitant]
     Dosage: 20 MEQ, UNKNOWN
  22. FACTIVE [Concomitant]
     Dosage: UNK, UNKNOWN
  23. AMBIEN [Concomitant]
     Dosage: 10 MG, UNKNOWN
  24. ATACAND [Concomitant]
     Dosage: 32 MG, UNKNOWN
  25. ASTELIN [Concomitant]
     Dosage: UNK, UNKNOWN
  26. CARBINOXAMINE [Concomitant]
     Dosage: UNK, UNKNOWN
  27. HYDROCODONE W/PSEUDOEPHEDRINE [Concomitant]
     Dosage: UNK, UNKNOWN

REACTIONS (4)
  - ABDOMINAL PAIN [None]
  - DEHYDRATION [None]
  - PANCREATITIS [None]
  - PANCREATITIS CHRONIC [None]
